FAERS Safety Report 11821401 (Version 1)
Quarter: 2015Q4

REPORT INFORMATION
  Report Type: Spontaneous
  Country: US (occurrence: US)
  Receive Date: 20151210
  Receipt Date: 20151210
  Transmission Date: 20160305
  Serious: No
  Sender: FDA-Public Use
  Company Number: US-PFIZER INC-2015433783

PATIENT
  Sex: Male

DRUGS (2)
  1. LYRICA [Suspect]
     Active Substance: PREGABALIN
     Dosage: UNK
  2. PRISTIQ EXTENDED RELEASE [Suspect]
     Active Substance: DESVENLAFAXINE SUCCINATE
     Dosage: UNK

REACTIONS (20)
  - Mood swings [Unknown]
  - Depression [Unknown]
  - Depersonalisation [Unknown]
  - Headache [Unknown]
  - Drug withdrawal syndrome [Unknown]
  - Hot flush [Unknown]
  - Confusional state [Unknown]
  - Feeling abnormal [Unknown]
  - Hyperhidrosis [Unknown]
  - Feeling of despair [Unknown]
  - Fatigue [Unknown]
  - Crying [Unknown]
  - Chills [Unknown]
  - Anxiety [Unknown]
  - Paraesthesia [Unknown]
  - Nausea [Unknown]
  - Disturbance in attention [Unknown]
  - Irritability [Unknown]
  - Vomiting [Unknown]
  - Influenza like illness [Unknown]
